FAERS Safety Report 7780610-4 (Version None)
Quarter: 2011Q3

REPORT INFORMATION
  Report Type: 
  Country: None (occurrence: None)
  Receive Date: 20110927
  Receipt Date: 20100914
  Transmission Date: 20111222
  Serious: Yes (Hospitalization)
  Sender: FDA-Public Use
  Company Number: US-BRISTOL-MYERS SQUIBB COMPANY-15288657

PATIENT
  Sex: Male

DRUGS (4)
  1. METFORMIN HCL [Suspect]
  2. AVAPRO [Suspect]
  3. LANTUS [Suspect]
  4. NOVOLOG [Suspect]

REACTIONS (4)
  - VOMITING [None]
  - RENAL FAILURE ACUTE [None]
  - NAUSEA [None]
  - DIARRHOEA [None]
